FAERS Safety Report 20108034 (Version 2)
Quarter: 2021Q4

REPORT INFORMATION
  Report Type: Report from Study
  Country: CO (occurrence: CO)
  Receive Date: 20211124
  Receipt Date: 20211220
  Transmission Date: 20220304
  Serious: Yes (Hospitalization, Other)
  Sender: FDA-Public Use
  Company Number: CO-ASTELLAS-2021US045199

PATIENT
  Age: 71 Year
  Sex: Male

DRUGS (1)
  1. TACROLIMUS [Suspect]
     Active Substance: TACROLIMUS
     Indication: Liver transplant
     Route: 048
     Dates: start: 20160321

REACTIONS (12)
  - Epistaxis [Unknown]
  - Cholangitis [Unknown]
  - Liver transplant rejection [Unknown]
  - Septic shock [Unknown]
  - Abdominal pain [Unknown]
  - Pyrexia [Unknown]
  - Altered state of consciousness [Unknown]
  - Rectal haemorrhage [Unknown]
  - Melaena [Unknown]
  - Urine odour abnormal [Unknown]
  - Weight decreased [Unknown]
  - Body height decreased [Unknown]

NARRATIVE: CASE EVENT DATE: 20210817
